FAERS Safety Report 14192996 (Version 2)
Quarter: 2017Q4

REPORT INFORMATION
  Report Type: Report from Study
  Country: HU (occurrence: HU)
  Receive Date: 20171115
  Receipt Date: 20171207
  Transmission Date: 20180321
  Serious: Yes (Hospitalization, Other)
  Sender: FDA-Public Use
  Company Number: HU-REGENERON PHARMACEUTICALS, INC.-2017-26796

PATIENT

DRUGS (35)
  1. AVASTIN                            /00848101/ [Concomitant]
     Active Substance: SIMVASTATIN
     Dosage: 50 ?L, ONCE, OS
     Route: 031
     Dates: start: 20170803, end: 20170803
  2. CERUCAL [Concomitant]
     Active Substance: METOCLOPRAMIDE HYDROCHLORIDE
     Indication: ANTIEMETIC SUPPORTIVE CARE
     Dosage: UNK, QD
     Route: 042
     Dates: start: 20171106, end: 20171110
  3. EYLEA [Suspect]
     Active Substance: AFLIBERCEPT
     Dosage: 50 ?L, ONCE, OD
     Route: 031
     Dates: start: 20160331, end: 20160331
  4. EYLEA [Suspect]
     Active Substance: AFLIBERCEPT
     Dosage: 50 ?L, ONCE, OD
     Route: 031
     Dates: start: 20160525, end: 20160525
  5. MAGNESIUM [Concomitant]
     Active Substance: MAGNESIUM
     Indication: MINERAL SUPPLEMENTATION
     Dosage: 500 MG, QD
     Route: 048
     Dates: start: 2011
  6. CLOPIDOGREL [Concomitant]
     Active Substance: CLOPIDOGREL BISULFATE
     Indication: THROMBOSIS PROPHYLAXIS
     Dosage: 75 MG, QD
     Route: 048
     Dates: start: 20140506
  7. LANTUS [Concomitant]
     Active Substance: INSULIN GLARGINE
     Indication: DIABETES MELLITUS
     Dosage: 26 IU/DAY
     Route: 058
     Dates: start: 2011, end: 20170405
  8. MILURIT [Concomitant]
     Active Substance: ALLOPURINOL
     Indication: GOUT
     Dosage: 300 MG, QD
     Route: 048
     Dates: start: 2013
  9. KALDYUM [Concomitant]
     Active Substance: POTASSIUM CHLORIDE
     Indication: MINERAL SUPPLEMENTATION
     Dosage: 600 MG, PRN
     Route: 048
     Dates: start: 2011
  10. EYLEA [Suspect]
     Active Substance: AFLIBERCEPT
     Dosage: 50 ?L, ONCE, OD
     Route: 031
     Dates: start: 20160915, end: 20160915
  11. DOXAZOSIN SANDOZ [Concomitant]
     Active Substance: DOXAZOSIN MESYLATE
     Indication: HYPERTENSION
     Dosage: 4 MG, QD
     Route: 048
     Dates: start: 2015
  12. HYDROCHLOROTHIAZIDE W/TELMISARTAN [Concomitant]
     Active Substance: HYDROCHLOROTHIAZIDE\TELMISARTAN
     Indication: HYPERTENSION
     Dosage: 80 MG/25 MG TAB, QD
     Route: 048
     Dates: start: 2011
  13. THIOGAMMA [Concomitant]
     Active Substance: THIOCTIC ACID
     Indication: NEUROPATHY PERIPHERAL
     Dosage: 600 MG, QD
     Route: 048
     Dates: start: 2014
  14. MEDIPYRIN [Concomitant]
     Indication: ARTHRITIS
     Dosage: 500 MG, PRN
     Route: 048
     Dates: start: 2014
  15. CLOPIDOGREL [Concomitant]
     Active Substance: CLOPIDOGREL BISULFATE
     Indication: GOUT
     Dosage: 75 MG, QD
     Route: 048
     Dates: start: 20171106
  16. AVASTIN                            /00848101/ [Concomitant]
     Active Substance: SIMVASTATIN
     Indication: DIABETIC RETINAL OEDEMA
     Dosage: 50 ?L, ONCE, OS
     Route: 031
     Dates: start: 20170525, end: 20170525
  17. VITAMIN B6 [Concomitant]
     Active Substance: PYRIDOXINE HYDROCHLORIDE
     Indication: ANTIEMETIC SUPPORTIVE CARE
     Dosage: UNK, QD
     Route: 048
     Dates: start: 20171106, end: 20171110
  18. FURON                              /00032601/ [Concomitant]
     Active Substance: FUROSEMIDE
     Indication: HYPERTENSION
     Dosage: 40 MG, PRN
     Route: 048
     Dates: start: 2011
  19. AVASTIN                            /00848101/ [Concomitant]
     Active Substance: SIMVASTATIN
     Dosage: 50 ?L, ONCE, OS
     Route: 031
     Dates: start: 20171018, end: 20171018
  20. EYLEA [Suspect]
     Active Substance: AFLIBERCEPT
     Indication: DIABETIC RETINAL OEDEMA
     Dosage: 50 ?L, ONCE, OD
     Route: 031
     Dates: start: 20170302, end: 20170302
  21. EYLEA [Suspect]
     Active Substance: AFLIBERCEPT
     Dosage: 50 ?L, ONCE, OD
     Route: 031
     Dates: start: 20160622, end: 20160622
  22. EYLEA [Suspect]
     Active Substance: AFLIBERCEPT
     Dosage: 50 ?L, ONCE, OD
     Route: 031
     Dates: start: 20161110, end: 20161110
  23. INSULIN GLARGINE [Concomitant]
     Active Substance: INSULIN GLARGINE
     Indication: DIABETES MELLITUS
     Dosage: 33 IU, QD
     Route: 058
     Dates: start: 20170406
  24. AVASTIN                            /00848101/ [Concomitant]
     Active Substance: SIMVASTATIN
     Dosage: 50 ?L, ONCE, OS
     Route: 031
     Dates: start: 20171123, end: 20171123
  25. EYLEA [Suspect]
     Active Substance: AFLIBERCEPT
     Dosage: 50 ?L, ONCE, OD
     Route: 031
     Dates: start: 20160427, end: 20160427
  26. NOVORAPID [Concomitant]
     Active Substance: INSULIN ASPART
     Indication: DIABETES MELLITUS
     Dosage: 8-10-8 IU/DAY
     Route: 058
     Dates: start: 2011
  27. AMLODIPIN                          /00972401/ [Concomitant]
     Active Substance: AMLODIPINE BESYLATE
     Indication: HYPERTENSION
     Dosage: 5 MG, TID
     Route: 048
     Dates: start: 2015
  28. RILMENIDINE [Concomitant]
     Active Substance: RILMENIDINE
     Indication: HYPERTENSION
     Dosage: 1 MG, QD
     Route: 048
     Dates: start: 2014
  29. PANTOPRAZOLE [Concomitant]
     Active Substance: PANTOPRAZOLE
     Indication: GASTROOESOPHAGEAL REFLUX DISEASE
     Dosage: 40 MG, BID
     Route: 048
     Dates: start: 2009
  30. ATORVA [Concomitant]
     Indication: PROPHYLAXIS
     Dosage: 20 MG, QD
     Route: 048
     Dates: start: 2015
  31. EYLEA [Suspect]
     Active Substance: AFLIBERCEPT
     Dosage: 50 ?L, ONCE, OD
     Route: 031
     Dates: start: 20160721, end: 20160721
  32. EYLEA [Suspect]
     Active Substance: AFLIBERCEPT
     Dosage: 50 ?L, ONCE, OD
     Route: 031
     Dates: start: 20170105, end: 20170105
  33. CORYOL                             /00984501/ [Concomitant]
     Active Substance: CARVEDILOL
     Indication: HYPERTENSION
     Dosage: 25 MG, QD
     Route: 048
     Dates: start: 2001
  34. ALFETIM [Concomitant]
     Indication: BENIGN PROSTATIC HYPERPLASIA
     Dosage: 5 MG, BID
     Route: 048
     Dates: start: 20160301
  35. AVASTIN                            /00848101/ [Concomitant]
     Active Substance: SIMVASTATIN
     Dosage: 50 ?L, ONCE, OS
     Route: 031
     Dates: start: 20170831, end: 20170831

REACTIONS (1)
  - Lacunar stroke [Recovered/Resolved]

NARRATIVE: CASE EVENT DATE: 20171106
